FAERS Safety Report 10158505 (Version 3)
Quarter: 2014Q2

REPORT INFORMATION
  Report Type: Spontaneous
  Country: DE (occurrence: DE)
  Receive Date: 20140507
  Receipt Date: 20140617
  Transmission Date: 20141212
  Serious: Yes (Hospitalization, Other)
  Sender: FDA-Public Use
  Company Number: DE-ACORDA-ACO_103301_2014

PATIENT
  Age: 50 Year
  Sex: Male

DRUGS (2)
  1. FAMPYRA [Suspect]
     Indication: GAIT DISTURBANCE
     Dosage: 10 MG, BID
     Route: 048
     Dates: start: 20140409, end: 20140420
  2. GILENYA [Concomitant]
     Indication: MULTIPLE SCLEROSIS
     Dosage: 0.5 MG, QD
     Dates: start: 20110508

REACTIONS (1)
  - Generalised tonic-clonic seizure [Recovered/Resolved]
